FAERS Safety Report 25633823 (Version 1)
Quarter: 2025Q3

REPORT INFORMATION
  Report Type: Spontaneous
  Country: US (occurrence: US)
  Receive Date: 20250801
  Receipt Date: 20250801
  Transmission Date: 20251020
  Serious: No
  Sender: SANOFI AVENTIS
  Company Number: US-SA-2025SA220299

PATIENT
  Age: 63 Year
  Sex: Male
  Weight: 88.64 kg

DRUGS (10)
  1. DUPIXENT [Suspect]
     Active Substance: DUPILUMAB
     Indication: Dermatitis
     Dosage: 300 MG, QOW
     Route: 058
     Dates: end: 202506
  2. HYDROCORTISONE [Concomitant]
     Active Substance: HYDROCORTISONE
  3. LISINOPRIL [Concomitant]
     Active Substance: LISINOPRIL
  4. LORAZEPAM [Concomitant]
     Active Substance: LORAZEPAM
  5. TRIAMCINOLONE ACETONIDE [Concomitant]
     Active Substance: TRIAMCINOLONE ACETONIDE
  6. TAMSULOSIN HYDROCHLORIDE [Concomitant]
     Active Substance: TAMSULOSIN HYDROCHLORIDE
  7. ASPIRIN [Concomitant]
     Active Substance: ASPIRIN
  8. METHOTREXATE [Concomitant]
     Active Substance: METHOTREXATE
  9. NORTRIPTYLINE HYDROCHLORIDE [Concomitant]
     Active Substance: NORTRIPTYLINE HYDROCHLORIDE
  10. SERTRALINE HYDROCHLORIDE [Concomitant]
     Active Substance: SERTRALINE HYDROCHLORIDE

REACTIONS (2)
  - Surgery [Unknown]
  - Product use in unapproved indication [Unknown]

NARRATIVE: CASE EVENT DATE: 20250624
